FAERS Safety Report 11413297 (Version 1)
Quarter: 2015Q3

REPORT INFORMATION
  Report Type: Spontaneous
  Country: US (occurrence: US)
  Receive Date: 20150821
  Receipt Date: 20150821
  Transmission Date: 20151125
  Serious: No
  Sender: FDA-Public Use
  Company Number: US-ELI_LILLY_AND_COMPANY-US201105000885

PATIENT
  Sex: Female

DRUGS (7)
  1. HUMULIN 70/30 [Suspect]
     Active Substance: INSULIN HUMAN
     Dosage: 76 U, EACH EVENING
     Dates: start: 2001
  2. HUMULIN 70/30 [Suspect]
     Active Substance: INSULIN HUMAN
     Dosage: 64 U, EACH MORNING
     Dates: start: 2001
  3. HUMULIN 70/30 [Suspect]
     Active Substance: INSULIN HUMAN
     Dosage: 76 U, EACH EVENING
     Dates: start: 2001
  4. HUMULIN 70/30 [Suspect]
     Active Substance: INSULIN HUMAN
     Indication: DIABETES MELLITUS
     Dosage: 64 U, EACH MORNING
     Dates: start: 2001
  5. HUMULIN 70/30 [Suspect]
     Active Substance: INSULIN HUMAN
     Dosage: 76 U, EACH EVENING
  6. HUMULIN 70/30 [Suspect]
     Active Substance: INSULIN HUMAN
     Dosage: 64 U, EACH MORNING
  7. NOVOLOG MIX 70/30 [Concomitant]
     Active Substance: INSULIN ASPART

REACTIONS (11)
  - Erythema [Unknown]
  - Pruritus [Unknown]
  - Swelling face [Unknown]
  - Fear [Unknown]
  - Rash [Unknown]
  - Blood glucose decreased [Unknown]
  - Abdominal distension [Unknown]
  - Blood glucose increased [Recovered/Resolved]
  - Pruritus [Not Recovered/Not Resolved]
  - Lip swelling [Unknown]
  - Hypersensitivity [Unknown]
